FAERS Safety Report 17801520 (Version 1)
Quarter: 2020Q2

REPORT INFORMATION
  Report Type: Report from Study
  Country: BR (occurrence: BR)
  Receive Date: 20200519
  Receipt Date: 20200519
  Transmission Date: 20200714
  Serious: Yes (Other)
  Sender: FDA-Public Use
  Company Number: NVSC2019BR062105

PATIENT
  Sex: Female

DRUGS (1)
  1. OMNITROPE [Suspect]
     Active Substance: SOMATROPIN
     Indication: GROWTH DISORDER
     Dosage: 4.0 OT, QD
     Route: 058

REACTIONS (1)
  - Bone neoplasm [Recovering/Resolving]
